FAERS Safety Report 6385897-0 (Version None)
Quarter: 2009Q4

REPORT INFORMATION
  Report Type: 
  Country: None (occurrence: None)
  Receive Date: 20091002
  Receipt Date: 20090529
  Transmission Date: 20100525
  Serious: No
  Sender: FDA-Public Use
  Company Number: US-ASTRAZENECA-2009UW01418

PATIENT
  Age: 77 Year
  Sex: Female
  Weight: 61.2 kg

DRUGS (6)
  1. ARIMIDEX [Suspect]
     Indication: BREAST CANCER
     Route: 048
     Dates: start: 20090115, end: 20090301
  2. MULTI-VITAMINS [Concomitant]
  3. MAXZIDE [Concomitant]
     Indication: HYPERTENSION
  4. ASPIRIN [Concomitant]
  5. AROMASIN [Concomitant]
     Indication: BREAST CANCER
  6. PRILOSEC [Concomitant]
     Indication: GASTROOESOPHAGEAL REFLUX DISEASE

REACTIONS (6)
  - ARTHRALGIA [None]
  - HAIR GROWTH ABNORMAL [None]
  - INSOMNIA [None]
  - LYMPHOEDEMA [None]
  - PAIN IN EXTREMITY [None]
  - RASH [None]
